FAERS Safety Report 22107342 (Version 4)
Quarter: 2024Q4

REPORT INFORMATION
  Report Type: Spontaneous
  Country: US (occurrence: US)
  Receive Date: 20230317
  Receipt Date: 20241106
  Transmission Date: 20250115
  Serious: No
  Sender: UCB
  Company Number: US-UCBSA-2022070939

PATIENT
  Sex: Female

DRUGS (11)
  1. BRIVIACT [Suspect]
     Active Substance: BRIVARACETAM
     Indication: Seizure
     Dosage: 100 MILLIGRAM, 2X/DAY (BID)
     Route: 048
  2. BRIVIACT [Suspect]
     Active Substance: BRIVARACETAM
     Dosage: 50 MILLIGRAM, 2X/DAY (BID)
  3. BRIVIACT [Suspect]
     Active Substance: BRIVARACETAM
     Dosage: 100 MILLIGRAM, 2X/DAY (BID)
  4. BRIVIACT [Suspect]
     Active Substance: BRIVARACETAM
     Dosage: 100 MILLIGRAM, 2X/DAY (BID)
  5. BRIVIACT [Suspect]
     Active Substance: BRIVARACETAM
     Dosage: 25MG + 100MG- 1 TAB EACH TWICE DAILY
  6. VIMPAT [Suspect]
     Active Substance: LACOSAMIDE
     Indication: Seizure
     Dosage: 100 MILLIGRAM, 2X/DAY (BID)
  7. VIMPAT [Suspect]
     Active Substance: LACOSAMIDE
     Dosage: 150 MILLIGRAM, 2X/DAY (BID)
  8. VIMPAT [Suspect]
     Active Substance: LACOSAMIDE
     Dosage: 150 MG IN AM, 100 MG IN PM
  9. VIMPAT [Suspect]
     Active Substance: LACOSAMIDE
     Dosage: 50 MILLIGRAM, 2X/DAY (BID)
  10. DILANTIN [Concomitant]
     Active Substance: PHENYTOIN
     Indication: Product used for unknown indication
     Dosage: TAKE 1 CAPSULE BY MOUTH EACH MORNING AND TWO CAPSULES EACH EVENING.
     Route: 048
     Dates: start: 20220914
  11. LUMINAL [PHENOBARBITAL] [Concomitant]
     Indication: Product used for unknown indication
     Dosage: TAKE 0.5 TABLETS BY MOUTH 2 (TWO) TIMES DAILY FOR 180 DAYS
     Route: 048
     Dates: start: 20220914, end: 20230313

REACTIONS (2)
  - Therapy change [Unknown]
  - Off label use [Unknown]
